FAERS Safety Report 21551181 (Version 1)
Quarter: 2022Q4

REPORT INFORMATION
  Report Type: Spontaneous
  Country: US (occurrence: None)
  Receive Date: 20221103
  Receipt Date: 20221103
  Transmission Date: 20230112
  Serious: No
  Sender: FDA-Public Use
  Company Number: None

PATIENT
  Age: 17 Year
  Sex: Male

DRUGS (1)
  1. HUMIRA [Suspect]
     Active Substance: ADALIMUMAB
     Indication: Hidradenitis
     Dosage: 40MG OTHER  SUBCUTANEOUS?
     Route: 058
     Dates: start: 202203

REACTIONS (2)
  - Tonsillectomy [None]
  - Therapy interrupted [None]

NARRATIVE: CASE EVENT DATE: 20221014
